FAERS Safety Report 5475203-8 (Version None)
Quarter: 2007Q4

REPORT INFORMATION
  Report Type: 
  Country: None (occurrence: None)
  Receive Date: 20071002
  Receipt Date: 20070921
  Transmission Date: 20080405
  Serious: Yes (Hospitalization)
  Sender: FDA-Public Use
  Company Number: US-ELI_LILLY_AND_COMPANY-US200709005681

PATIENT
  Age: 87 Year
  Sex: Female

DRUGS (6)
  1. FORTEO [Suspect]
     Dosage: UNK, UNK
     Dates: start: 20070701, end: 20070901
  2. METFORMIN HYDROCHLORIDE [Concomitant]
  3. GLYBURIDE [Concomitant]
  4. DOXAZOSIN MESYLATE [Concomitant]
  5. VERAPAMIL [Concomitant]
  6. ENALAPRIL MALEATE [Concomitant]

REACTIONS (1)
  - KIDNEY INFECTION [None]
